FAERS Safety Report 6592998-0 (Version None)
Quarter: 2010Q1

REPORT INFORMATION
  Report Type: 
  Country: None (occurrence: None)
  Receive Date: 20100212
  Receipt Date: 20100205
  Transmission Date: 20100710
  Serious: Yes (Other)
  Sender: FDA-Public Use
  Company Number: CERZ-1001104

PATIENT
  Age: 26 Year
  Sex: Male
  Weight: 65 kg

DRUGS (2)
  1. CEREZYME [Suspect]
     Indication: GAUCHER'S DISEASE
     Dosage: 30 U/KG, Q4W, INTRAVENOUS
     Route: 042
     Dates: start: 20030307
  2. XERISTAR [Concomitant]

REACTIONS (2)
  - NERVOUS SYSTEM DISORDER [None]
  - RETINAL ARTERY OCCLUSION [None]
